FAERS Safety Report 8889354 (Version 1)
Quarter: 2012Q4

REPORT INFORMATION
  Report Type: Spontaneous
  Country: US (occurrence: None)
  Receive Date: 20121102
  Receipt Date: 20121102
  Transmission Date: 20130627
  Serious: Yes (Other)
  Sender: FDA-Public Use
  Company Number: None

PATIENT
  Age: 27 Year
  Sex: Female
  Weight: 86.18 kg

DRUGS (4)
  1. BACTRIM DS [Suspect]
     Indication: UTI
     Dosage: 1 tablet 2 times daily po
     Route: 048
     Dates: start: 20121011, end: 20121018
  2. BACTRIM DS [Suspect]
     Indication: SKIN SWELLING
     Dosage: 1 tablet 2 times daily po
     Route: 048
     Dates: start: 20121011, end: 20121018
  3. BACTRIM DS [Suspect]
     Indication: UTI
     Dates: start: 20121018, end: 20121023
  4. BACTRIM DS [Suspect]
     Indication: SKIN SWELLING
     Dates: start: 20121018, end: 20121023

REACTIONS (2)
  - Drug hypersensitivity [None]
  - Dermatitis infected [None]
